FAERS Safety Report 7234812-6 (Version None)
Quarter: 2011Q1

REPORT INFORMATION
  Report Type: 
  Country: None (occurrence: None)
  Receive Date: 20110114
  Receipt Date: 20110114
  Transmission Date: 20110831
  Serious: Yes (Other)
  Sender: FDA-Public Use
  Company Number: None

PATIENT
  Age: 74 Year
  Sex: Female

DRUGS (1)
  1. DRONEDARONE HCL [Suspect]

REACTIONS (6)
  - PULMONARY FIBROSIS [None]
  - COUGH [None]
  - OXYGEN SATURATION DECREASED [None]
  - DYSPNOEA [None]
  - ATRIAL FIBRILLATION [None]
  - DYSPNOEA EXERTIONAL [None]
